FAERS Safety Report 6369285-9 (Version None)
Quarter: 2009Q3

REPORT INFORMATION
  Report Type: 
  Country: None (occurrence: None)
  Receive Date: 20090916
  Receipt Date: 20090911
  Transmission Date: 20100115
  Serious: Yes (Death, Other)
  Sender: FDA-Public Use
  Company Number: 2009SP024189

PATIENT
  Age: 58 Year
  Sex: Male

DRUGS (3)
  1. DANAPAROID SODIUM (S-P) (DANAPAROID SODIUM) [Suspect]
     Indication: HEPARIN-INDUCED THROMBOCYTOPENIA
  2. UNFRACTIONED HEPARIN (HEPARIN) [Suspect]
     Indication: DEEP VEIN THROMBOSIS
  3. UNFRACTIONED HEPARIN (HEPARIN) [Suspect]
     Indication: PULMONARY EMBOLISM

REACTIONS (2)
  - RESPIRATORY FAILURE [None]
  - VENOUS THROMBOSIS [None]
